FAERS Safety Report 4631469-5 (Version None)
Quarter: 2005Q2

REPORT INFORMATION
  Report Type: 
  Country: None (occurrence: None)
  Receive Date: 20050407
  Receipt Date: 20020325
  Transmission Date: 20051028
  Serious: No
  Sender: FDA-Public Use
  Company Number: 3472

PATIENT
  Age: 62 Year
  Sex: Female

DRUGS (4)
  1. METOCLOPRAMIDE [Suspect]
     Indication: ANTIEMETIC SUPPORTIVE CARE
     Dosage: 6.67 MG ONCE/20 MG ONCE
  2. CLOZAPINE [Concomitant]
  3. VALPROATE SODIUM [Concomitant]
  4. ZOLPIDEM TARTRATE [Concomitant]

REACTIONS (3)
  - DRUG INTERACTION [None]
  - DYSTONIA [None]
  - PLEUROTHOTONUS [None]
